FAERS Safety Report 16447483 (Version 5)
Quarter: 2019Q3

REPORT INFORMATION
  Report Type: Spontaneous
  Country: JP (occurrence: JP)
  Receive Date: 20190619
  Receipt Date: 20190912
  Transmission Date: 20191004
  Serious: Yes (Hospitalization, Other)
  Sender: FDA-Public Use
  Company Number: PHJP2019JP006882

PATIENT
  Age: 78 Year
  Sex: Female

DRUGS (4)
  1. SODIUM AZULENE SULFONATE L-GLUTAMINE COMB. [Suspect]
     Active Substance: GLUTAMINE\SODIUM GUALENATE
     Indication: ANAEMIA
     Dosage: UNK
     Route: 048
  2. SODIUM FERRIC CITRATE [Suspect]
     Active Substance: FERRIC SODIUM CITRATE
     Indication: ANAEMIA
     Dosage: UNK
     Route: 048
  3. RIVASTACH [Suspect]
     Active Substance: RIVASTIGMINE
     Indication: DEMENTIA ALZHEIMER^S TYPE
     Dosage: UNK
     Route: 062
  4. SODIUM GUALENATE HYDRATE [Concomitant]
     Active Substance: SODIUM GUALENATE MONOHYDRATE
     Indication: PRODUCT USED FOR UNKNOWN INDICATION
     Dosage: UNK
     Route: 065

REACTIONS (2)
  - Anaemia [Unknown]
  - Duodenal ulcer perforation [Unknown]
